FAERS Safety Report 5281890-X (Version None)
Quarter: 2007Q1

REPORT INFORMATION
  Report Type: 
  Country: None (occurrence: None)
  Receive Date: 20070326
  Receipt Date: 20070315
  Transmission Date: 20070707
  Serious: Yes (Other)
  Sender: FDA-Public Use
  Company Number: 2007AL001115

PATIENT
  Age: 54 Year
  Sex: Male
  Weight: 170 kg

DRUGS (2)
  1. GABAPENTIN [Suspect]
     Indication: NERVOUS SYSTEM DISORDER
     Dosage: 100 MG;TID;PO
     Route: 048
     Dates: start: 20060731, end: 20060801
  2. TRAMADOL HCL [Concomitant]

REACTIONS (3)
  - BACK PAIN [None]
  - MESOTHELIOMA [None]
  - MUSCULOSKELETAL PAIN [None]
